FAERS Safety Report 19010818 (Version 1)
Quarter: 2021Q1

REPORT INFORMATION
  Report Type: Spontaneous
  Country: DE (occurrence: DE)
  Receive Date: 20210316
  Receipt Date: 20210316
  Transmission Date: 20210420
  Serious: Yes (Life-Threatening, Hospitalization, Other)
  Sender: FDA-Public Use
  Company Number: DE-AUROBINDO-AUR-APL-2021-010108

PATIENT
  Age: 57 Year
  Sex: Female

DRUGS (6)
  1. AMLODIPINE [Suspect]
     Active Substance: AMLODIPINE BESYLATE
     Indication: PRODUCT USED FOR UNKNOWN INDICATION
     Dosage: UNK
     Route: 048
  2. VASOPRESSIN. [Concomitant]
     Active Substance: VASOPRESSIN
     Indication: VASOPLEGIA SYNDROME
     Dosage: 2.3 U/H
     Route: 065
  3. NOREPINEPHRINE. [Concomitant]
     Active Substance: NOREPINEPHRINE
     Indication: VASOPLEGIA SYNDROME
     Dosage: 2 MICROGRAM/KILOGRAM PER MINUTE
     Route: 065
  4. DOBUTAMINE [Concomitant]
     Active Substance: DOBUTAMINE HYDROCHLORIDE
     Indication: VASOPLEGIA SYNDROME
     Dosage: 1.3 MICROGRAM/KILOGRAM PER MINUTE
     Route: 065
  5. GLUCAGON HYDROCHLORIDE [Concomitant]
     Active Substance: GLUCAGON HYDROCHLORIDE
     Indication: PRODUCT USED FOR UNKNOWN INDICATION
     Dosage: UNK
     Route: 065
  6. EPINEPHRINE. [Concomitant]
     Active Substance: EPINEPHRINE
     Indication: VASOPLEGIA SYNDROME
     Dosage: 0.5 MICROGRAM/KILOGRAM PER MINUTE
     Route: 065

REACTIONS (9)
  - Vasoplegia syndrome [Recovered/Resolved]
  - Toxicity to various agents [Recovered/Resolved]
  - Intentional overdose [Recovered/Resolved]
  - Drug ineffective [Unknown]
  - Acute respiratory failure [Recovered/Resolved]
  - Suicide attempt [Unknown]
  - Haemodynamic instability [Recovered/Resolved]
  - Hypotension [Recovered/Resolved]
  - Cardiac arrest [Recovered/Resolved]
